FAERS Safety Report 22218037 (Version 2)
Quarter: 2024Q1

REPORT INFORMATION
  Report Type: Spontaneous
  Country: US (occurrence: US)
  Receive Date: 20230417
  Receipt Date: 20240221
  Transmission Date: 20240410
  Serious: No
  Sender: FDA-Public Use
  Company Number: US-ELI_LILLY_AND_COMPANY-US202304003576

PATIENT
  Age: 60 Year
  Sex: Male

DRUGS (27)
  1. MOUNJARO [Suspect]
     Active Substance: TIRZEPATIDE
     Indication: Diabetes mellitus
     Dosage: 2.5 MG, UNKNOWN
     Route: 058
     Dates: start: 20230208
  2. MOUNJARO [Suspect]
     Active Substance: TIRZEPATIDE
     Indication: Diabetes mellitus
     Dosage: 2.5 MG, UNKNOWN
     Route: 058
     Dates: start: 20230208
  3. MOUNJARO [Suspect]
     Active Substance: TIRZEPATIDE
     Indication: Diabetes mellitus
     Dosage: 2.5 MG, UNKNOWN
     Route: 058
     Dates: start: 20230208
  4. MOUNJARO [Suspect]
     Active Substance: TIRZEPATIDE
     Indication: Diabetes mellitus
     Dosage: 2.5 MG, UNKNOWN
     Route: 058
     Dates: start: 20230208
  5. MOUNJARO [Suspect]
     Active Substance: TIRZEPATIDE
     Indication: Weight decreased
  6. MOUNJARO [Suspect]
     Active Substance: TIRZEPATIDE
     Indication: Weight decreased
  7. MOUNJARO [Suspect]
     Active Substance: TIRZEPATIDE
     Indication: Weight decreased
  8. MOUNJARO [Suspect]
     Active Substance: TIRZEPATIDE
     Indication: Weight decreased
  9. MOUNJARO [Suspect]
     Active Substance: TIRZEPATIDE
     Indication: Blood glucose
  10. MOUNJARO [Suspect]
     Active Substance: TIRZEPATIDE
     Indication: Blood glucose
  11. MOUNJARO [Suspect]
     Active Substance: TIRZEPATIDE
     Indication: Blood glucose
  12. MOUNJARO [Suspect]
     Active Substance: TIRZEPATIDE
     Indication: Blood glucose
  13. MOUNJARO [Suspect]
     Active Substance: TIRZEPATIDE
     Indication: Diabetes mellitus
     Dosage: 7.5 MG, UNKNOWN
     Route: 058
  14. MOUNJARO [Suspect]
     Active Substance: TIRZEPATIDE
     Indication: Diabetes mellitus
     Dosage: 7.5 MG, UNKNOWN
     Route: 058
  15. MOUNJARO [Suspect]
     Active Substance: TIRZEPATIDE
     Indication: Diabetes mellitus
     Dosage: 7.5 MG, UNKNOWN
     Route: 058
  16. MOUNJARO [Suspect]
     Active Substance: TIRZEPATIDE
     Indication: Diabetes mellitus
     Dosage: 7.5 MG, UNKNOWN
     Route: 058
  17. MOUNJARO [Suspect]
     Active Substance: TIRZEPATIDE
     Indication: Diabetes mellitus
     Dosage: 7.5 MG, UNKNOWN
     Route: 058
  18. MOUNJARO [Suspect]
     Active Substance: TIRZEPATIDE
     Indication: Weight decreased
     Dosage: 7.5 MG, UNKNOWN
     Route: 058
     Dates: end: 20230407
  19. MOUNJARO [Suspect]
     Active Substance: TIRZEPATIDE
     Indication: Weight decreased
     Dosage: 7.5 MG, UNKNOWN
     Route: 058
     Dates: end: 20230407
  20. MOUNJARO [Suspect]
     Active Substance: TIRZEPATIDE
     Indication: Weight decreased
     Dosage: 7.5 MG, UNKNOWN
     Route: 058
     Dates: end: 20230407
  21. MOUNJARO [Suspect]
     Active Substance: TIRZEPATIDE
     Indication: Weight decreased
     Dosage: 7.5 MG, UNKNOWN
     Route: 058
     Dates: end: 20230407
  22. MOUNJARO [Suspect]
     Active Substance: TIRZEPATIDE
     Indication: Weight decreased
     Dosage: 7.5 MG, UNKNOWN
     Route: 058
     Dates: end: 20230407
  23. MOUNJARO [Suspect]
     Active Substance: TIRZEPATIDE
     Indication: Blood glucose
  24. MOUNJARO [Suspect]
     Active Substance: TIRZEPATIDE
     Indication: Blood glucose
  25. MOUNJARO [Suspect]
     Active Substance: TIRZEPATIDE
     Indication: Blood glucose
  26. MOUNJARO [Suspect]
     Active Substance: TIRZEPATIDE
     Indication: Blood glucose
  27. MOUNJARO [Suspect]
     Active Substance: TIRZEPATIDE
     Indication: Blood glucose

REACTIONS (4)
  - Blood glucose increased [Recovered/Resolved]
  - Migraine [Not Recovered/Not Resolved]
  - Weight increased [Not Recovered/Not Resolved]
  - Abdominal distension [Not Recovered/Not Resolved]
